FAERS Safety Report 10645218 (Version 2)
Quarter: 2015Q1

REPORT INFORMATION
  Report Type: Spontaneous
  Country: JP (occurrence: JP)
  Receive Date: 20141211
  Receipt Date: 20150102
  Transmission Date: 20150720
  Serious: No
  Sender: FDA-Public Use
  Company Number: JP-AMGEN-JPNSP2014096342

PATIENT
  Age: 75 Year
  Sex: Male

DRUGS (3)
  1. RANMARK [Suspect]
     Active Substance: DENOSUMAB
     Indication: METASTASES TO BONE
     Dosage: UNK
     Route: 065
  2. DENOTAS [Suspect]
     Active Substance: CALCIUM CARBONATE\CHOLECALCIFEROL\MAGNESIUM CARBONATE
     Indication: PRODUCT USED FOR UNKNOWN INDICATION
     Dosage: UNK
     Route: 065
  3. RANMARK [Suspect]
     Active Substance: DENOSUMAB
     Indication: BONE LESION

REACTIONS (1)
  - Hypocalcaemia [Unknown]

NARRATIVE: CASE EVENT DATE: 201408
